FAERS Safety Report 21365524 (Version 6)
Quarter: 2023Q2

REPORT INFORMATION
  Report Type: Spontaneous
  Country: US (occurrence: US)
  Receive Date: 20220922
  Receipt Date: 20230606
  Transmission Date: 20230722
  Serious: No
  Sender: FDA-Public Use
  Company Number: US-PHARMAESSENTIA CORPORATION-US-2022-PEC-000715

PATIENT

DRUGS (10)
  1. BESREMI [Suspect]
     Active Substance: ROPEGINTERFERON ALFA-2B-NJFT
     Indication: Polycythaemia vera
     Dosage: 100 MCG, Q2W
     Route: 058
     Dates: start: 20220610
  2. BESREMI [Suspect]
     Active Substance: ROPEGINTERFERON ALFA-2B-NJFT
     Dosage: 100 MCG, Q2W
     Route: 058
  3. BESREMI [Suspect]
     Active Substance: ROPEGINTERFERON ALFA-2B-NJFT
     Dosage: UNK
     Route: 065
     Dates: start: 20220624
  4. BESREMI [Suspect]
     Active Substance: ROPEGINTERFERON ALFA-2B-NJFT
     Dosage: 100 MCG
     Route: 058
     Dates: start: 20220729
  5. BESREMI [Suspect]
     Active Substance: ROPEGINTERFERON ALFA-2B-NJFT
     Dosage: UNK
     Route: 065
  6. BESREMI [Suspect]
     Active Substance: ROPEGINTERFERON ALFA-2B-NJFT
     Dosage: 200 MCG
     Route: 058
  7. BESREMI [Suspect]
     Active Substance: ROPEGINTERFERON ALFA-2B-NJFT
     Dosage: UNK
     Route: 065
  8. BESREMI [Suspect]
     Active Substance: ROPEGINTERFERON ALFA-2B-NJFT
     Dosage: UNK
     Route: 065
  9. BESREMI [Suspect]
     Active Substance: ROPEGINTERFERON ALFA-2B-NJFT
     Dosage: 200 MCG
     Route: 058
  10. SCOPE [CETYLPYRIDINIUM BROMIDE;DOMIPHEN BROMIDE] [Concomitant]
     Indication: Product used for unknown indication
     Route: 048

REACTIONS (27)
  - Hot flush [Recovering/Resolving]
  - Onychoclasis [Recovering/Resolving]
  - Therapeutic product effect incomplete [Unknown]
  - Tongue disorder [Unknown]
  - Therapy interrupted [Unknown]
  - Red blood cell count increased [Unknown]
  - Blood iron decreased [Not Recovered/Not Resolved]
  - Haemoptysis [Recovered/Resolved]
  - Adverse drug reaction [Unknown]
  - Mean cell haemoglobin concentration decreased [Unknown]
  - Increased tendency to bruise [Unknown]
  - Sinusitis [Unknown]
  - Mean cell haemoglobin decreased [Unknown]
  - Dry mouth [Unknown]
  - Haematocrit decreased [Not Recovered/Not Resolved]
  - Fatigue [Unknown]
  - Respiratory tract congestion [Not Recovered/Not Resolved]
  - Headache [Recovering/Resolving]
  - Pain [Not Recovered/Not Resolved]
  - Abnormal dreams [Recovering/Resolving]
  - Night sweats [Recovering/Resolving]
  - Influenza like illness [Unknown]
  - Abdominal pain upper [Unknown]
  - Haemoglobin decreased [Recovered/Resolved]
  - Productive cough [Not Recovered/Not Resolved]
  - Rash macular [Unknown]
  - Epistaxis [Not Recovered/Not Resolved]
